FAERS Safety Report 10262864 (Version 2)
Quarter: 2014Q2

REPORT INFORMATION
  Report Type: Report from Study
  Country: US (occurrence: US)
  Receive Date: 20140626
  Receipt Date: 20140626
  Transmission Date: 20141212
  Serious: Yes (Death)
  Sender: FDA-Public Use
  Company Number: US-MYLANLABS-2013S1020202

PATIENT
  Age: 76 Year
  Sex: Male
  Weight: 88.91 kg

DRUGS (3)
  1. CLOZAPINE TABLETS [Suspect]
     Indication: HALLUCINATION
     Route: 048
     Dates: start: 20120221, end: 20130621
  2. CLOZAPINE TABLETS [Suspect]
     Indication: PARKINSON^S DISEASE
     Route: 048
     Dates: start: 20120221, end: 20130621
  3. CLOZAPINE TABLETS [Suspect]
     Indication: OFF LABEL USE
     Route: 048
     Dates: start: 20120221, end: 20130621

REACTIONS (1)
  - Death [Fatal]
